FAERS Safety Report 10386203 (Version 1)
Quarter: 2014Q3

REPORT INFORMATION
  Report Type: Spontaneous
  Country: ES (occurrence: ES)
  Receive Date: 20140814
  Receipt Date: 20140814
  Transmission Date: 20150326
  Serious: Yes (Other)
  Sender: FDA-Public Use
  Company Number: PHHY2014ES100509

PATIENT
  Age: 23 Year
  Sex: Female

DRUGS (5)
  1. CICLOSPORIN [Suspect]
     Active Substance: CYCLOSPORINE
     Indication: LUPUS NEPHRITIS
  2. PREDNISONE. [Suspect]
     Active Substance: PREDNISONE
     Indication: LUPUS NEPHRITIS
  3. CICLOSPORIN [Suspect]
     Active Substance: CYCLOSPORINE
     Indication: SYSTEMIC LUPUS ERYTHEMATOSUS
     Dosage: 200 MG, PER DAY
  4. MYCOPHENOLATE MOFETIL. [Concomitant]
     Active Substance: MYCOPHENOLATE MOFETIL
     Indication: PROTEINURIA
     Dosage: 1500 MG, PER DAY
  5. PREDNISONE. [Suspect]
     Active Substance: PREDNISONE
     Indication: SYSTEMIC LUPUS ERYTHEMATOSUS
     Dosage: 1 MG/KG, PER DAY
     Route: 048

REACTIONS (12)
  - Generalised oedema [Unknown]
  - Glomerulonephritis proliferative [Unknown]
  - Thrombocytopenia [Unknown]
  - Nephrotic syndrome [Unknown]
  - Disease recurrence [Unknown]
  - Drug effect incomplete [Unknown]
  - Lupus nephritis [Unknown]
  - Anaemia [Unknown]
  - Cushingoid [Unknown]
  - Blood creatinine increased [Unknown]
  - Gingival hypertrophy [Unknown]
  - Renal disorder [Recovering/Resolving]
